FAERS Safety Report 10186251 (Version 1)
Quarter: 2014Q2

REPORT INFORMATION
  Report Type: Spontaneous
  Country: AU (occurrence: AU)
  Receive Date: 20140521
  Receipt Date: 20140521
  Transmission Date: 20141212
  Serious: Yes (Life-Threatening)
  Sender: FDA-Public Use
  Company Number: AU-GLAXOSMITHKLINE-B0995555A

PATIENT
  Age: 68 Year
  Sex: Female

DRUGS (5)
  1. SALBUTAMOL SULPHATE [Suspect]
     Indication: ASTHMA
     Route: 055
  2. BUDESONIDE [Concomitant]
  3. IPRATROPIUM [Concomitant]
  4. PREDNISONE [Concomitant]
  5. FORMOTEROL [Concomitant]

REACTIONS (2)
  - Cardiac arrest [Unknown]
  - Bronchospasm paradoxical [Unknown]
